FAERS Safety Report 4505837-6 (Version None)
Quarter: 2004Q4

REPORT INFORMATION
  Report Type: 
  Country: None (occurrence: None)
  Receive Date: 20041025
  Receipt Date: 20040805
  Transmission Date: 20050328
  Serious: Yes (Other)
  Sender: FDA-Public Use
  Company Number: US-JNJFOC-20040305278

PATIENT
  Age: 73 Year
  Sex: Female
  Weight: 57.6068 kg

DRUGS (8)
  1. REMICADE [Suspect]
     Indication: RHEUMATOID ARTHRITIS
     Dosage: INTRAVENOUS
     Route: 042
     Dates: start: 20040304
  2. REMICADE [Suspect]
     Indication: RHEUMATOID ARTHRITIS
     Dosage: INTRAVENOUS
     Route: 042
     Dates: start: 20040712
  3. METHOTREXATE [Concomitant]
  4. ATIVAN [Concomitant]
  5. ASPIRIN TAB [Concomitant]
  6. VITAMINS (VITAMINS) [Concomitant]
  7. FOLIC ACID [Concomitant]
  8. PREDNISONE [Concomitant]

REACTIONS (3)
  - HYPERTENSION [None]
  - MYOCARDIAL INFARCTION [None]
  - SYSTEMIC LUPUS ERYTHEMATOSUS [None]
